FAERS Safety Report 9026679 (Version 4)
Quarter: 2013Q2

REPORT INFORMATION
  Report Type: Spontaneous
  Country: US (occurrence: None)
  Receive Date: 20121231
  Receipt Date: 20130514
  Transmission Date: 20140414
  Serious: Yes (Hospitalization)
  Sender: FDA-Public Use
  Company Number: 2012PROUSA02391

PATIENT
  Age: 87 Year
  Sex: Male
  Weight: 80.8 kg

DRUGS (10)
  1. PROVENGE (SIPULEUCEL-T) SUSPENSION [Suspect]
     Indication: PROSTATE CANCER METASTATIC
     Route: 042
     Dates: start: 20121119, end: 20121119
  2. LUPRON (LEUPRORELIN ACETATE) [Concomitant]
  3. LISINOPRIL (LISINOPRIL) [Concomitant]
  4. SYMBICORT [Concomitant]
  5. BENEFIBER FIBER SUPPLEMENT (CYAMOPSIS TETRAGONOLOBA GUM) [Concomitant]
  6. CALCIUM GLUCONATE (CALCIUM GLUCONATE) [Concomitant]
  7. CHOLECALCIFEROL (COLECALCIFEROL) [Concomitant]
  8. CYANOCOBALAMIN (CYANOCOBALAMIN) [Concomitant]
  9. PRAVASTATIN SODIUM (PRAVASTATIN SODIUM) [Concomitant]
  10. PLAVIX (CLOPIDOGREL BISULFATE) [Concomitant]

REACTIONS (10)
  - Syncope [None]
  - Nausea [None]
  - Vomiting [None]
  - Cardiac flutter [None]
  - Chest pain [None]
  - Abdominal discomfort [None]
  - Insomnia [None]
  - Gastroenteritis viral [None]
  - Sinus bradycardia [None]
  - QRS axis abnormal [None]
